FAERS Safety Report 8840259 (Version 2)
Quarter: 2012Q4

REPORT INFORMATION
  Report Type: 
  Country: JP (occurrence: JP)
  Receive Date: 20121015
  Receipt Date: 20121113
  Transmission Date: 20130627
  Serious: Yes (Death)
  Sender: FDA-Public Use
  Company Number: JP-GLAXOSMITHKLINE-B0837303A

PATIENT
  Age: 51 Year
  Sex: Male

DRUGS (8)
  1. LAMICTAL [Suspect]
     Indication: BIPOLAR I DISORDER
     Dosage: 25MG Per day
     Route: 048
     Dates: start: 20100106, end: 20100118
  2. DEPAKENE-R [Concomitant]
     Indication: BIPOLAR DISORDER
     Dosage: 400MG Twice per day
     Route: 048
     Dates: end: 20100119
  3. LIMAS [Concomitant]
     Indication: BIPOLAR DISORDER
     Route: 048
     Dates: start: 20091109, end: 20091117
  4. LIMAS [Concomitant]
     Indication: BIPOLAR DISORDER
     Route: 048
     Dates: start: 20091118, end: 20100106
  5. LIMAS [Concomitant]
     Indication: BIPOLAR DISORDER
     Dosage: 200MG Three times per day
     Route: 048
     Dates: start: 20100107, end: 20100119
  6. LENDORMIN [Concomitant]
     Indication: INSOMNIA
     Dosage: .25MG Per day
     Route: 048
     Dates: end: 20100119
  7. AMOBAN [Concomitant]
     Indication: INSOMNIA
     Dosage: 7.5MG Per day
     Route: 048
     Dates: start: 20091118, end: 20100119
  8. LIVALO [Concomitant]
     Indication: HYPERLIPIDAEMIA
     Dosage: 2MG Per day
     Route: 048
     Dates: end: 20100119

REACTIONS (31)
  - Toxic epidermal necrolysis [Fatal]
  - Drug reaction with eosinophilia and systemic symptoms [Fatal]
  - Stevens-Johnson syndrome [Fatal]
  - Disseminated intravascular coagulation [Fatal]
  - Multi-organ failure [Fatal]
  - Renal impairment [Unknown]
  - Pyrexia [Unknown]
  - Face oedema [Unknown]
  - Malaise [Unknown]
  - Feeling abnormal [Unknown]
  - Erythema [Unknown]
  - Hepatic function abnormal [Unknown]
  - Platelet count decreased [Unknown]
  - Prothrombin time prolonged [Unknown]
  - Rash papular [Unknown]
  - General physical health deterioration [Unknown]
  - Aspartate aminotransferase increased [Unknown]
  - Alanine aminotransferase increased [Unknown]
  - Blood lactate dehydrogenase increased [Unknown]
  - Blood alkaline phosphatase increased [Unknown]
  - Gamma-glutamyltransferase increased [Unknown]
  - Blood urea increased [Unknown]
  - Blood creatinine increased [Unknown]
  - C-reactive protein increased [Unknown]
  - Neutrophil percentage increased [Unknown]
  - Lymphocyte percentage decreased [Unknown]
  - Monocyte percentage decreased [Unknown]
  - Prothrombin level decreased [Unknown]
  - Fibrin D dimer increased [Unknown]
  - Antithrombin III decreased [Unknown]
  - Thrombin-antithrombin III complex increased [Unknown]
